FAERS Safety Report 24770717 (Version 1)
Quarter: 2024Q4

REPORT INFORMATION
  Report Type: Spontaneous
  Country: IN (occurrence: None)
  Receive Date: 20241224
  Receipt Date: 20241224
  Transmission Date: 20250115
  Serious: Yes (Hospitalization, Other)
  Sender: UNICHEM
  Company Number: IN-Unichem Pharmaceuticals (USA) Inc-UCM202412-001709

PATIENT
  Age: 39 Year
  Sex: Male

DRUGS (6)
  1. BACLOFEN [Suspect]
     Active Substance: BACLOFEN
     Indication: Alcoholism
  2. BACLOFEN [Suspect]
     Active Substance: BACLOFEN
  3. BACLOFEN [Suspect]
     Active Substance: BACLOFEN
  4. BACLOFEN [Suspect]
     Active Substance: BACLOFEN
  5. BACLOFEN [Suspect]
     Active Substance: BACLOFEN
     Dosage: 20 MG/30 MG
     Dates: end: 20221017
  6. PROPOFOL [Concomitant]
     Active Substance: PROPOFOL
     Indication: Product used for unknown indication
     Dosage: UNKNOWN

REACTIONS (12)
  - Bradycardia [Unknown]
  - Bradypnoea [Unknown]
  - Areflexia [Unknown]
  - Amnesia [Unknown]
  - Respiratory depression [Recovering/Resolving]
  - Loss of consciousness [None]
  - Coma scale abnormal [Recovered/Resolved]
  - Stupor [Unknown]
  - Miosis [Recovering/Resolving]
  - Drug abuse [Unknown]
  - Toxicity to various agents [Unknown]
  - Overdose [Unknown]
